FAERS Safety Report 11444842 (Version 3)
Quarter: 2015Q4

REPORT INFORMATION
  Report Type: Spontaneous
  Country: US (occurrence: US)
  Receive Date: 20150902
  Receipt Date: 20151020
  Transmission Date: 20160304
  Serious: Yes (Hospitalization)
  Sender: FDA-Public Use
  Company Number: US-AUROBINDO-AUR-APL-2015-07527

PATIENT
  Age: 73 Year
  Weight: 85.26 kg

DRUGS (6)
  1. AXITINIB [Suspect]
     Active Substance: AXITINIB
     Indication: PRODUCT USED FOR UNKNOWN INDICATION
     Dosage: 5 MG, TWO TIMES A DAY
     Route: 048
     Dates: start: 20141007
  2. LOPRESSOR [Concomitant]
     Active Substance: METOPROLOL TARTRATE
     Indication: HYPERTENSION
     Dosage: UNK
     Route: 048
     Dates: start: 20130828
  3. LOSARTAN. [Concomitant]
     Active Substance: LOSARTAN
     Indication: HYPERTENSION
     Dosage: UNK
     Route: 048
     Dates: start: 20130828
  4. JANUVIA [Suspect]
     Active Substance: SITAGLIPTIN PHOSPHATE
     Indication: DIABETES MELLITUS
     Dosage: UNK
     Route: 048
     Dates: start: 20130828
  5. METFORMIN [Suspect]
     Active Substance: METFORMIN HYDROCHLORIDE
     Indication: DIABETES MELLITUS
     Dosage: UNK
     Route: 048
     Dates: start: 20130828
  6. LEVOTHYROXINE. [Concomitant]
     Active Substance: LEVOTHYROXINE
     Indication: HYPERTHYROIDISM
     Dosage: UNK
     Route: 048
     Dates: start: 20130828

REACTIONS (8)
  - Dizziness [Recovered/Resolved]
  - Hypoglycaemia [Recovered/Resolved]
  - Toxicity to various agents [Recovered/Resolved]
  - Nausea [Recovered/Resolved]
  - Vomiting [Recovered/Resolved]
  - Acute kidney injury [Recovered/Resolved]
  - Asthenia [Recovered/Resolved]
  - Blood creatinine increased [Recovered/Resolved]

NARRATIVE: CASE EVENT DATE: 20150807
